FAERS Safety Report 13834687 (Version 2)
Quarter: 2019Q1

REPORT INFORMATION
  Report Type: Report from Study
  Country: FR (occurrence: FR)
  Receive Date: 20170804
  Receipt Date: 20190312
  Transmission Date: 20190417
  Serious: Yes (Hospitalization)
  Sender: FDA-Public Use
  Company Number: FR-ROCHE-1938463

PATIENT
  Age: 49 Year
  Sex: Male
  Weight: 96 kg

DRUGS (8)
  1. ETOPOSIDE. [Suspect]
     Active Substance: ETOPOSIDE
     Indication: GERM CELL NEOPLASM
     Dosage: 150 MG/M2 (300 MG/DAY FROM D2 TO D6)
     Route: 065
     Dates: start: 20170222
  2. ETOPOSIDE. [Suspect]
     Active Substance: ETOPOSIDE
     Route: 065
     Dates: start: 2006
  3. UROMITEXAN [Concomitant]
     Active Substance: MESNA
  4. CARBOPLATINE [Suspect]
     Active Substance: CARBOPLATIN
     Indication: GERM CELL NEOPLASM
     Dosage: 4 AUC (720 MG/DAY FROM D2 TO D6)
     Route: 065
     Dates: start: 20170222
  5. IFOSFAMIDE. [Suspect]
     Active Substance: IFOSFAMIDE
     Route: 065
     Dates: start: 2006
  6. BEVACIZUMAB. [Suspect]
     Active Substance: BEVACIZUMAB
     Indication: GERM CELL NEOPLASM
     Dosage: 7.5 MG/KG EVERY 3 WEEKS FROM D1 TO THE FIRST INTENSIFIED TREATMENT FOR A TOTAL OF 4 INJECTIONS
     Route: 065
     Dates: start: 20170221
  7. IFOSFAMIDE. [Suspect]
     Active Substance: IFOSFAMIDE
     Indication: GERM CELL NEOPLASM
     Dosage: 2.4 MG/M2 (4.8 G/DAY FROM D2 TO D6)
     Route: 065
     Dates: start: 20170222
  8. METHYLPREDNISOLONE. [Concomitant]
     Active Substance: METHYLPREDNISOLONE

REACTIONS (4)
  - Renal tubular necrosis [Recovering/Resolving]
  - Acute kidney injury [Recovered/Resolved]
  - Septic shock [Recovering/Resolving]
  - Bone marrow failure [Recovering/Resolving]

NARRATIVE: CASE EVENT DATE: 20170228
